FAERS Safety Report 23052724 (Version 3)
Quarter: 2024Q1

REPORT INFORMATION
  Report Type: Spontaneous
  Country: US (occurrence: US)
  Receive Date: 20231011
  Receipt Date: 20240108
  Transmission Date: 20240410
  Serious: No
  Sender: FDA-Public Use
  Company Number: US-BRISTOL-MYERS SQUIBB COMPANY-2023-144143

PATIENT
  Age: 64 Year
  Sex: Male

DRUGS (21)
  1. REVLIMID [Suspect]
     Active Substance: LENALIDOMIDE
     Indication: Plasma cell myeloma in remission
     Dosage: TAKE AT THE SAME TIME EVERY DAY AND CONSIISTENTLY WITH OR WITHOUT FOOD
     Route: 048
     Dates: start: 20231005
  2. REVLIMID [Suspect]
     Active Substance: LENALIDOMIDE
     Indication: Plasma cell myeloma
     Dosage: TAKE AT THE SAME TIME EVERY DAY AND CONSIISTENTLY WITH OR WITHOUT FOOD
     Route: 048
     Dates: start: 20230613
  3. EMPLICITI [Suspect]
     Active Substance: ELOTUZUMAB
     Indication: Plasma cell myeloma in remission
  4. ALLOPURINOL [Concomitant]
     Active Substance: ALLOPURINOL
     Indication: Product used for unknown indication
  5. CALCIUM [Concomitant]
     Active Substance: CALCIUM
     Indication: Product used for unknown indication
  6. CIPROFLOXACIN [Concomitant]
     Active Substance: CIPROFLOXACIN
     Indication: Product used for unknown indication
  7. DEXAMETHASONE [Concomitant]
     Active Substance: DEXAMETHASONE
     Indication: Product used for unknown indication
  8. ELIQUIS [Concomitant]
     Active Substance: APIXABAN
     Indication: Product used for unknown indication
  9. FAMOTIDINE [Concomitant]
     Active Substance: FAMOTIDINE
     Indication: Product used for unknown indication
  10. GARLIC [Concomitant]
     Active Substance: GARLIC
     Indication: Product used for unknown indication
  11. VITAMINS NOS [Concomitant]
     Active Substance: VITAMINS
     Indication: Product used for unknown indication
     Dosage: ADLT 50+
  12. OMEGA 3 [COLECALCIFEROL;DOCOSAHEXAENOIC ACID;EICOSAPENTAENOIC ACID;RET [Concomitant]
     Indication: Product used for unknown indication
  13. ONDANSETRON [Concomitant]
     Active Substance: ONDANSETRON
     Indication: Product used for unknown indication
  14. OXYCODONE [Concomitant]
     Active Substance: OXYCODONE
     Indication: Product used for unknown indication
  15. PROCHLORPERAZINE MALEATE [Concomitant]
     Active Substance: PROCHLORPERAZINE MALEATE
     Indication: Product used for unknown indication
  16. PROCHLORPERAZINE MALEATE [Concomitant]
     Active Substance: PROCHLORPERAZINE MALEATE
  17. SELENIUM [Concomitant]
     Active Substance: SELENIUM
     Indication: Product used for unknown indication
  18. VITAMIN D3 [Concomitant]
     Active Substance: CHOLECALCIFEROL
     Indication: Product used for unknown indication
     Dosage: 1000 UNIT
  19. VITAMIN E [Concomitant]
     Active Substance: .ALPHA.-TOCOPHEROL
     Indication: Product used for unknown indication
     Dosage: 1000 UNIT
  20. ZINC GLUCONATE [Concomitant]
     Active Substance: ZINC GLUCONATE
     Indication: Product used for unknown indication
  21. ZINC SULFATE [Concomitant]
     Active Substance: ZINC SULFATE
     Indication: Product used for unknown indication

REACTIONS (1)
  - Blood creatinine increased [Unknown]
